FAERS Safety Report 6156577-1 (Version None)
Quarter: 2009Q2

REPORT INFORMATION
  Report Type: 
  Country: None (occurrence: None)
  Receive Date: 20090416
  Receipt Date: 20090407
  Transmission Date: 20091009
  Serious: Yes (Death, Other)
  Sender: FDA-Public Use
  Company Number: CA-NOVOPROD-282062

PATIENT
  Age: 71 Year
  Sex: Male
  Weight: 50 kg

DRUGS (1)
  1. NIASTASE [Suspect]
     Indication: HAEMORRHAGE
     Dosage: 4.8 MG, SINGLE
     Route: 042
     Dates: start: 20080601, end: 20080601

REACTIONS (3)
  - CARDIO-RESPIRATORY ARREST [None]
  - HYPOXIC ENCEPHALOPATHY [None]
  - PULMONARY EMBOLISM [None]
